FAERS Safety Report 5165910-9 (Version None)
Quarter: 2006Q4

REPORT INFORMATION
  Report Type: 
  Country: None (occurrence: None)
  Receive Date: 20061128
  Receipt Date: 20061114
  Transmission Date: 20070319
  Serious: Yes (Hospitalization)
  Sender: FDA-Public Use
  Company Number: 2005BI015687

PATIENT
  Age: 60 Year
  Sex: Female

DRUGS (7)
  1. AVONEX [Suspect]
     Indication: MULTIPLE SCLEROSIS
     Dosage: 30 UG;QW;IM
     Route: 030
     Dates: start: 19960819
  2. BACLOFEN [Concomitant]
  3. GABAPENTIN [Concomitant]
  4. ATENOLOL [Concomitant]
  5. LASIX [Concomitant]
  6. MULTI-VITAMIN [Concomitant]
  7. NEURONTIN [Concomitant]

REACTIONS (12)
  - ATROPHY [None]
  - DECUBITUS ULCER [None]
  - DISEASE RECURRENCE [None]
  - GENERAL PHYSICAL HEALTH DETERIORATION [None]
  - HYPOTHERMIA [None]
  - MULTIPLE SCLEROSIS RELAPSE [None]
  - MUSCLE SPASMS [None]
  - PNEUMONIA [None]
  - RESPIRATORY DISTRESS [None]
  - SPINAL DISORDER [None]
  - SPINAL OSTEOARTHRITIS [None]
  - URINARY TRACT INFECTION [None]
